FAERS Safety Report 19920204 (Version 2)
Quarter: 2022Q2

REPORT INFORMATION
  Report Type: Spontaneous
  Country: US (occurrence: US)
  Receive Date: 20211005
  Receipt Date: 20220505
  Transmission Date: 20220721
  Serious: No
  Sender: FDA-Public Use
  Company Number: US-PFIZER INC-2021747455

PATIENT
  Age: 56 Year
  Sex: Female

DRUGS (3)
  1. XELJANZ [Suspect]
     Active Substance: TOFACITINIB CITRATE
     Dosage: 5 MG
     Dates: start: 20210510
  2. XELJANZ [Suspect]
     Active Substance: TOFACITINIB CITRATE
     Dosage: 5 MG
     Dates: start: 20210629
  3. XELJANZ [Suspect]
     Active Substance: TOFACITINIB CITRATE
     Dosage: 5 MG
     Dates: start: 20210529

REACTIONS (7)
  - Drug ineffective [Unknown]
  - Nausea [Unknown]
  - Abdominal discomfort [Unknown]
  - Pain [Not Recovered/Not Resolved]
  - Hepatic enzyme increased [Unknown]
  - Inflammation [Not Recovered/Not Resolved]
  - Tinnitus [Unknown]
